FAERS Safety Report 7202525-2 (Version None)
Quarter: 2010Q4

REPORT INFORMATION
  Report Type: 
  Country: None (occurrence: None)
  Receive Date: 20101206
  Receipt Date: 20101123
  Transmission Date: 20110411
  Serious: Yes (Other)
  Sender: FDA-Public Use
  Company Number: 2010026807

PATIENT
  Sex: Female

DRUGS (1)
  1. PRIVIGEN [Suspect]
     Dosage: 10 G INTRAVENOUS
     Route: 042
     Dates: start: 20101030, end: 20101030

REACTIONS (7)
  - FATIGUE [None]
  - GASTROINTESTINAL INFECTION [None]
  - HEPATITIS C ANTIBODY POSITIVE [None]
  - LIVER FUNCTION TEST ABNORMAL [None]
  - NO REACTION ON PREVIOUS EXPOSURE TO DRUG [None]
  - PERIPHERAL CIRCULATORY FAILURE [None]
  - PRODUCT QUALITY ISSUE [None]
